FAERS Safety Report 14346723 (Version 1)
Quarter: 2018Q1

REPORT INFORMATION
  Report Type: Spontaneous
  Country: US (occurrence: US)
  Receive Date: 20180103
  Receipt Date: 20180103
  Transmission Date: 20180509
  Serious: No
  Sender: FDA-Public Use
  Company Number: US-TEVA-817629ACC

PATIENT
  Sex: Male

DRUGS (1)
  1. PACLITAXEL. [Suspect]
     Active Substance: PACLITAXEL
     Route: 065

REACTIONS (6)
  - Fatigue [Unknown]
  - Apathy [Unknown]
  - Asthenia [Unknown]
  - Pruritus [Unknown]
  - Feeling abnormal [Unknown]
  - Weight decreased [Unknown]
